FAERS Safety Report 6053788-0 (Version None)
Quarter: 2009Q1

REPORT INFORMATION
  Report Type: 
  Country: None (occurrence: None)
  Receive Date: 20090127
  Receipt Date: 20081021
  Transmission Date: 20090719
  Serious: Yes (Hospitalization, Other)
  Sender: FDA-Public Use
  Company Number: US-TEVA-179156USA

PATIENT
  Sex: Female

DRUGS (1)
  1. COPAXONE [Suspect]
     Indication: MULTIPLE SCLEROSIS
     Route: 058
     Dates: start: 20060101, end: 20080601

REACTIONS (5)
  - CONVULSION [None]
  - GASTROENTERITIS VIRAL [None]
  - HYPOGLYCAEMIA [None]
  - LOCAL SWELLING [None]
  - URINARY TRACT INFECTION [None]
